FAERS Safety Report 9115711 (Version 1)
Quarter: 2013Q1

REPORT INFORMATION
  Report Type: Spontaneous
  Country: TW (occurrence: TW)
  Receive Date: 20130225
  Receipt Date: 20130225
  Transmission Date: 20140127
  Serious: Yes (Other)
  Sender: FDA-Public Use
  Company Number: TW-PFIZER INC-2013063992

PATIENT
  Age: 70 Year
  Sex: Male

DRUGS (2)
  1. FLUOROURACIL [Suspect]
     Indication: RECTAL CANCER STAGE III
     Dosage: 450 MG/M2, WEEKLY
     Route: 040
  2. LEUCOVORIN [Suspect]
     Indication: RECTAL CANCER STAGE III
     Dosage: 30 MG/M2, UNK

REACTIONS (1)
  - Pseudomembranous colitis [Recovering/Resolving]
